FAERS Safety Report 17381314 (Version 1)
Quarter: 2020Q1

REPORT INFORMATION
  Report Type: Spontaneous
  Country: US (occurrence: US)
  Receive Date: 20200206
  Receipt Date: 20200206
  Transmission Date: 20200409
  Serious: Yes (Disabling)
  Sender: FDA-Public Use
  Company Number: None

PATIENT
  Age: 24 Year
  Sex: Female
  Weight: 76.5 kg

DRUGS (1)
  1. DESONIDE. [Suspect]
     Active Substance: DESONIDE
     Indication: ECZEMA
     Route: 061

REACTIONS (10)
  - Anxiety [None]
  - Temperature regulation disorder [None]
  - Neuralgia [None]
  - Insomnia [None]
  - Depression [None]
  - Skin weeping [None]
  - Lymphadenopathy [None]
  - Urticaria [None]
  - Steroid withdrawal syndrome [None]
  - Alopecia [None]

NARRATIVE: CASE EVENT DATE: 20191124
